FAERS Safety Report 5341537-0 (Version None)
Quarter: 2007Q2

REPORT INFORMATION
  Report Type: 
  Country: None (occurrence: None)
  Receive Date: 20070530
  Receipt Date: 20070530
  Transmission Date: 20071010
  Serious: Yes (Other)
  Sender: FDA-Public Use
  Company Number: None

PATIENT
  Age: 42 Year
  Sex: Female
  Weight: 68.0396 kg

DRUGS (2)
  1. ALPHAGAN [Suspect]
     Indication: GLAUCOMA
     Dosage: 1 DROP IN EACH EYE TWICE DAILY OPHTHALMIC
     Route: 047
     Dates: start: 20070120, end: 20070420
  2. ALPHAGAN [Suspect]
     Indication: OCULAR HYPERTENSION
     Dosage: 1 DROP IN EACH EYE TWICE DAILY OPHTHALMIC
     Route: 047
     Dates: start: 20070120, end: 20070420

REACTIONS (1)
  - EYE INFECTION [None]
